FAERS Safety Report 15570508 (Version 3)
Quarter: 2018Q4

REPORT INFORMATION
  Report Type: Spontaneous
  Country: US (occurrence: US)
  Receive Date: 20181031
  Receipt Date: 20181205
  Transmission Date: 20190205
  Serious: Yes (Disabling, Other)
  Sender: FDA-Public Use
  Company Number: US-NOVOPROD-628658

PATIENT
  Age: 88 Year
  Sex: Female

DRUGS (2)
  1. NOVOLOG [Suspect]
     Active Substance: INSULIN ASPART
     Indication: TYPE 1 DIABETES MELLITUS
     Dosage: 12-18 (UNITS UNKNOWN) FOUR TIMES A DAY
     Route: 065
     Dates: start: 1975
  2. LANTUS [Concomitant]
     Active Substance: INSULIN GLARGINE
     Indication: TYPE 1 DIABETES MELLITUS
     Dosage: 24 UNITS HS
     Route: 065

REACTIONS (11)
  - Head injury [Recovered/Resolved]
  - Fracture [Recovering/Resolving]
  - Cerebrovascular accident [Recovered/Resolved]
  - Eye swelling [Unknown]
  - Hypotension [Not Recovered/Not Resolved]
  - Retinopathy [Not Recovered/Not Resolved]
  - Catheter placement [Recovered/Resolved]
  - Blood glucose fluctuation [Not Recovered/Not Resolved]
  - Haemorrhage [Unknown]
  - Macular degeneration [Not Recovered/Not Resolved]
  - Loss of consciousness [Not Recovered/Not Resolved]

NARRATIVE: CASE EVENT DATE: 2012
